FAERS Safety Report 6076449-0 (Version None)
Quarter: 2009Q1

REPORT INFORMATION
  Report Type: 
  Country: None (occurrence: None)
  Receive Date: 20090213
  Receipt Date: 20090206
  Transmission Date: 20090719
  Serious: No
  Sender: FDA-Public Use
  Company Number: US-JNJFOC-20090202310

PATIENT
  Sex: Female
  Weight: 63.5 kg

DRUGS (5)
  1. FENTANYL TRANSDERMAL SYSTEM [Suspect]
     Dosage: TWO 25MCG/HR PATCHES.
     Route: 062
  2. FENTANYL TRANSDERMAL SYSTEM [Suspect]
     Indication: ROTATOR CUFF SYNDROME
     Route: 062
  3. BUMEX [Concomitant]
     Indication: DIURETIC THERAPY
     Route: 048
  4. GABAPENTIN [Concomitant]
     Indication: NEUROPATHY PERIPHERAL
     Dosage: TWO 100 MG TABLETS
     Route: 048
  5. DIOVAN [Concomitant]
     Indication: BLOOD PRESSURE
     Route: 048

REACTIONS (4)
  - DISORIENTATION [None]
  - INCORRECT DOSE ADMINISTERED [None]
  - PAIN [None]
  - PRODUCT QUALITY ISSUE [None]
